FAERS Safety Report 8499378-1 (Version None)
Quarter: 2012Q3

REPORT INFORMATION
  Report Type: 
  Country: None (occurrence: None)
  Receive Date: 20120710
  Receipt Date: 20120625
  Transmission Date: 20120928
  Serious: Yes (Other)
  Sender: FDA-Public Use
  Company Number: CA-UCBSA-060603

PATIENT
  Age: 62 Year
  Sex: Female
  Weight: 81.6 kg

DRUGS (15)
  1. CIMZIA [Suspect]
     Dosage: WEEKS 0-2-4
     Route: 058
     Dates: start: 20120208, end: 20120307
  2. PREDNISONE [Concomitant]
     Indication: RHEUMATOID ARTHRITIS
     Dosage: ON AND OFF
     Route: 048
     Dates: start: 20090101
  3. CIMZIA [Suspect]
     Indication: RHEUMATOID ARTHRITIS
     Route: 058
     Dates: start: 20120418
  4. RABAPRAZOLE [Concomitant]
  5. AMOXIL [Concomitant]
     Dosage: FOR 7 DAYS
     Dates: start: 20120601, end: 20120622
  6. SULFASALAZINE [Concomitant]
     Indication: RHEUMATOID ARTHRITIS
     Route: 048
     Dates: start: 19950101
  7. CELEBREX [Concomitant]
     Route: 048
  8. METHOTREXATE [Concomitant]
     Indication: RHEUMATOID ARTHRITIS
     Route: 048
     Dates: start: 19950101
  9. PLAQUENIL [Concomitant]
     Indication: RHEUMATOID ARTHRITIS
     Route: 048
     Dates: start: 19950101
  10. LEVOTHYROXINE SODIUM [Concomitant]
  11. FOLIC ACID [Concomitant]
  12. ATACAND HCT [Concomitant]
     Indication: BLOOD PRESSURE
  13. HUMIRA [Concomitant]
     Indication: RHEUMATOID ARTHRITIS
     Dosage: MG
     Route: 058
     Dates: start: 20110601, end: 20120125
  14. ACTONEL [Concomitant]
  15. CILEXETIL [Concomitant]
     Indication: HYPERTENSION

REACTIONS (2)
  - VULVOVAGINAL MYCOTIC INFECTION [None]
  - DENTAL CARIES [None]
